FAERS Safety Report 4501960-0 (Version None)
Quarter: 2004Q4

REPORT INFORMATION
  Report Type: 
  Country: None (occurrence: None)
  Receive Date: 20041115
  Receipt Date: 20041115
  Transmission Date: 20050328
  Serious: Yes (Life-Threatening, Hospitalization)
  Sender: FDA-Public Use
  Company Number: None

PATIENT
  Age: 58 Year
  Sex: Male
  Weight: 103.1 kg

DRUGS (15)
  1. MAXZIDE [Suspect]
  2. METOPROLOL 50 MG TAB [Suspect]
  3. DILTIAZEM [Suspect]
  4. FOSINOPRIL SODIUM [Suspect]
  5. ATORVASTATIN CALCIUM [Concomitant]
  6. DONEPEZIL HCL [Concomitant]
  7. ACETAMINOPHEN [Concomitant]
  8. CEPASTAT LOZENGES [Concomitant]
  9. SUGAR FREE COUGH SYRUP DM [Concomitant]
  10. CLONIDINE [Concomitant]
  11. . [Concomitant]
  12. LACTULOSE [Concomitant]
  13. NITROGLYCERIN [Concomitant]
  14. RISPERIDONE [Concomitant]
  15. INSULIN 70/30 NPH/REG [Concomitant]

REACTIONS (4)
  - HYPOTENSION [None]
  - HYPOVOLAEMIA [None]
  - RENAL FAILURE ACUTE [None]
  - SYNCOPE [None]
